FAERS Safety Report 4548251-X (Version None)
Quarter: 2004Q4

REPORT INFORMATION
  Report Type: 
  Country: None (occurrence: None)
  Receive Date: 20041227
  Receipt Date: 20041011
  Transmission Date: 20050328
  Serious: No
  Sender: FDA-Public Use
  Company Number: 04P-163-0276913-00

PATIENT
  Age: 85 Year
  Sex: Female
  Weight: 63.5036 kg

DRUGS (9)
  1. HUMIRA [Suspect]
     Indication: RHEUMATOID ARTHRITIS
     Dosage: 40 MG, 1 IN 2 WK, SUBCUTANEOUS
     Route: 058
     Dates: start: 20040819
  2. FUROSEMIDE [Concomitant]
  3. AMLODIPINE BESYLATE [Concomitant]
  4. HYDROXYCHLOROQUINE PHOSPHATE [Concomitant]
  5. FEXOFENADINE HYDROCHLORIDE [Concomitant]
  6. MELOXICAM [Concomitant]
  7. POTASSIUM CHLORIDE [Concomitant]
  8. ALENDRONATE SODIUM [Concomitant]
  9. MULTI-VITAMINS [Concomitant]

REACTIONS (1)
  - HEART RATE INCREASED [None]
